FAERS Safety Report 13263159 (Version 1)
Quarter: 2017Q1

REPORT INFORMATION
  Report Type: Spontaneous
  Country: GB (occurrence: GB)
  Receive Date: 20170223
  Receipt Date: 20170223
  Transmission Date: 20170428
  Serious: Yes (Other)
  Sender: FDA-Public Use
  Company Number: GB-ACCORD-048375

PATIENT
  Age: 81 Year
  Sex: Female
  Weight: 106.9 kg

DRUGS (6)
  1. LOSARTAN SANDOZ [Concomitant]
     Active Substance: LOSARTAN
     Indication: HYPERTENSION
     Route: 048
  2. ASPIRIN. [Concomitant]
     Active Substance: ASPIRIN
     Indication: CARDIOVASCULAR DISORDER
     Route: 048
  3. LETROZOLE ACCORD [Suspect]
     Active Substance: LETROZOLE
     Indication: BREAST CANCER FEMALE
     Dosage: PRESCRIBED: 5 YEARS
     Route: 048
     Dates: start: 20161119, end: 20161121
  4. LUMIGAN [Concomitant]
     Active Substance: BIMATOPROST
     Indication: GLAUCOMA
     Route: 047
  5. PRAVASTATIN. [Concomitant]
     Active Substance: PRAVASTATIN
     Indication: CARDIOVASCULAR DISORDER
     Route: 048
  6. BENDROFLUMETHIAZIDE [Concomitant]
     Active Substance: BENDROFLUMETHIAZIDE
     Indication: HYPERTENSION
     Route: 048

REACTIONS (3)
  - Headache [Recovering/Resolving]
  - Vision blurred [Recovering/Resolving]
  - Nystagmus [Recovering/Resolving]

NARRATIVE: CASE EVENT DATE: 20161119
